FAERS Safety Report 21486853 (Version 2)
Quarter: 2022Q4

REPORT INFORMATION
  Report Type: Report from Study
  Country: US (occurrence: US)
  Receive Date: 20221020
  Receipt Date: 20221025
  Transmission Date: 20230112
  Serious: Yes (Hospitalization, Other)
  Sender: FDA-Public Use
  Company Number: US-JNJFOC-20221026066

PATIENT

DRUGS (4)
  1. REMICADE [Suspect]
     Active Substance: INFLIXIMAB
     Indication: Product used for unknown indication
     Route: 041
  2. TACROLIMUS [Concomitant]
     Active Substance: TACROLIMUS
  3. MYCOPHENOLATE MOFETIL [Concomitant]
     Active Substance: MYCOPHENOLATE MOFETIL
  4. PREDNISONE [Concomitant]
     Active Substance: PREDNISONE

REACTIONS (10)
  - Ovarian cancer [Unknown]
  - Prostate cancer [Unknown]
  - Polyomavirus-associated nephropathy [Unknown]
  - Cytomegalovirus viraemia [Unknown]
  - Polyomavirus viraemia [Unknown]
  - Mycobacterial infection [Unknown]
  - Infection [Unknown]
  - Fungal infection [Unknown]
  - Impaired healing [Unknown]
  - Drug ineffective [Unknown]
